FAERS Safety Report 4555670-4 (Version None)
Quarter: 2005Q1

REPORT INFORMATION
  Report Type: 
  Country: None (occurrence: None)
  Receive Date: 20050111
  Receipt Date: 20040928
  Transmission Date: 20050727
  Serious: No
  Sender: FDA-Public Use
  Company Number: 2004S1000205

PATIENT
  Age: 22 Year
  Sex: Male
  Weight: 84 kg

DRUGS (2)
  1. CUBICIN [Suspect]
     Indication: FEBRILE NEUTROPENIA
     Dosage: 525 MG;Q24H;IV
     Route: 042
     Dates: start: 20040919
  2. CEFEPIME [Concomitant]

REACTIONS (1)
  - EXTRAVASATION [None]
